FAERS Safety Report 7472960-6 (Version None)
Quarter: 2011Q2

REPORT INFORMATION
  Report Type: 
  Country: None (occurrence: None)
  Receive Date: 20110503
  Receipt Date: 20110419
  Transmission Date: 20111010
  Serious: Yes (Hospitalization)
  Sender: FDA-Public Use
  Company Number: 031243

PATIENT
  Sex: Female
  Weight: 73.9 kg

DRUGS (5)
  1. POLYETHYLENE GLYCOL [Concomitant]
  2. ACETAMINOPHEN [Concomitant]
  3. CIMZIA [Suspect]
     Indication: CROHN'S DISEASE
     Dosage: 400 MG  1X/MONTH SUBCUTANEOUS
     Route: 058
     Dates: start: 20101123
  4. MIRALAX [Concomitant]
  5. PREDNISONE [Concomitant]

REACTIONS (2)
  - ILEOCOLECTOMY [None]
  - DRUG EXPOSURE DURING PREGNANCY [None]
